FAERS Safety Report 7380019-1 (Version None)
Quarter: 2011Q1

REPORT INFORMATION
  Report Type: 
  Country: None (occurrence: None)
  Receive Date: 20110318
  Receipt Date: 20110310
  Transmission Date: 20110831
  Serious: Yes (Death, Other)
  Sender: FDA-Public Use
  Company Number: JHP201100054

PATIENT
  Sex: Male
  Weight: 1.5 kg

DRUGS (4)
  1. COLY-MYCIN M [Suspect]
     Indication: PATHOGEN RESISTANCE
     Dosage: 5000 IU/KG, DAILY; INTRAVENOUS
     Route: 042
  2. COLY-MYCIN M [Suspect]
     Indication: BACTERIAL INFECTION
     Dosage: 5000 IU/KG, DAILY; INTRAVENOUS
     Route: 042
  3. MEROPENEM [Concomitant]
  4. NETILMICIN [Concomitant]

REACTIONS (2)
  - DEATH NEONATAL [None]
  - RENAL IMPAIRMENT NEONATAL [None]
